FAERS Safety Report 22351742 (Version 1)
Quarter: 2023Q2

REPORT INFORMATION
  Report Type: Spontaneous
  Country: US (occurrence: None)
  Receive Date: 20230522
  Receipt Date: 20230522
  Transmission Date: 20230722
  Serious: No
  Sender: FDA-Public Use
  Company Number: None

PATIENT

DRUGS (2)
  1. HYDRALAZINE HCL [Suspect]
     Active Substance: HYDRALAZINE HYDROCHLORIDE
     Dosage: OTHER ROUTE : IM OR IV USE;?
     Route: 050
  2. ONDANSETRON [Suspect]
     Active Substance: ONDANSETRON
     Dosage: OTHER QUANTITY : 4MG/2ML;?OTHER ROUTE : IM OR IV USE;?
     Route: 050

REACTIONS (3)
  - Product packaging confusion [None]
  - Wrong product administered [None]
  - Product label confusion [None]
